FAERS Safety Report 10273212 (Version 1)
Quarter: 2014Q2

REPORT INFORMATION
  Report Type: Spontaneous
  Country: JP (occurrence: None)
  Receive Date: 20140630
  Receipt Date: 20140630
  Transmission Date: 20141212
  Serious: Yes (Other)
  Sender: FDA-Public Use
  Company Number: 2014JP00591

PATIENT
  Sex: 0

DRUGS (2)
  1. CARBOPLATIN [Suspect]
     Dosage: AREA UNDER THE CURVE OF FOUR DAY 1
  2. IRINOTECAN [Suspect]
     Dosage: 50 MG/M2 DAY 1 AND 8 EVERY 3 WEEKS FOR FOUR COURSES

REACTIONS (1)
  - Pneumonia [None]
